FAERS Safety Report 5209367-8 (Version None)
Quarter: 2006Q4

REPORT INFORMATION
  Report Type: 
  Country: None (occurrence: None)
  Receive Date: 20061101
  Receipt Date: 20061004
  Transmission Date: 20070319
  Serious: No
  Sender: FDA-Public Use
  Company Number: SPV1-2006-01068

PATIENT
  Age: 58 Year
  Sex: Male
  Weight: 72.5 kg

DRUGS (10)
  1. FOSRENOL [Suspect]
     Indication: HYPERPHOSPHATAEMIA
     Dosage: 1 G, ORAL
     Route: 048
     Dates: start: 20060929, end: 20060929
  2. FLOMAX (MORNIFLUMATE) [Concomitant]
  3. RENAGEL (SEVELAMER) [Concomitant]
  4. COREG [Concomitant]
  5. LIPITOR [Concomitant]
  6. LOTREL (BENAZEPRIL HYDROCHLORIDE, AMLODIPINE) [Concomitant]
  7. NITROGLYCERIN [Concomitant]
  8. FLEXERIL [Concomitant]
  9. SINGULAIR [Concomitant]
  10. ADVAIR (SALMETEROL XINAFOATE, FLUTICASONE PROPIONATE) [Concomitant]

REACTIONS (1)
  - PRURITUS GENERALISED [None]
